FAERS Safety Report 9720603 (Version 1)
Quarter: 2013Q4

REPORT INFORMATION
  Report Type: Spontaneous
  Country: US (occurrence: US)
  Receive Date: 20131129
  Receipt Date: 20131129
  Transmission Date: 20140711
  Serious: Yes (Hospitalization, Other)
  Sender: FDA-Public Use
  Company Number: US-AMGEN-USASP2013083789

PATIENT
  Age: 79 Year
  Sex: Female

DRUGS (2)
  1. ENBREL [Suspect]
     Indication: RHEUMATOID ARTHRITIS
     Dosage: 50 MG, QWK
     Route: 065
  2. REMICAID [Suspect]
     Indication: PRODUCT USED FOR UNKNOWN INDICATION
     Dosage: UNK
     Route: 065

REACTIONS (13)
  - Bursitis [Recovered/Resolved]
  - Arthropathy [Recovered/Resolved]
  - Arthritis [Not Recovered/Not Resolved]
  - Plastic surgery to the face [Recovered/Resolved]
  - Wound infection [Recovered/Resolved]
  - Arthritis infective [Recovered/Resolved]
  - Bursitis infective [Recovered/Resolved]
  - Basal cell carcinoma [Recovered/Resolved]
  - Hypertension [Recovered/Resolved]
  - Dysstasia [Not Recovered/Not Resolved]
  - Asthenia [Not Recovered/Not Resolved]
  - Gait disturbance [Not Recovered/Not Resolved]
  - Injection site pain [Recovered/Resolved]
